FAERS Safety Report 10947663 (Version 1)
Quarter: 2015Q1

REPORT INFORMATION
  Report Type: Spontaneous
  Country: GB (occurrence: GB)
  Receive Date: 20150323
  Receipt Date: 20150323
  Transmission Date: 20150721
  Serious: Yes (Other)
  Sender: FDA-Public Use
  Company Number: GB-UCBSA-2015008322

PATIENT
  Sex: Male

DRUGS (15)
  1. LEVODOPA [Concomitant]
     Active Substance: LEVODOPA
     Indication: PRODUCT USED FOR UNKNOWN INDICATION
     Dosage: UNK
     Dates: start: 2005
  2. CITALOPRAM [Concomitant]
     Active Substance: CITALOPRAM HYDROBROMIDE
     Indication: AFFECTIVE DISORDER
     Dosage: UNK
  3. DUODOPA [Concomitant]
     Active Substance: CARBIDOPA\LEVODOPA
     Indication: PRODUCT USED FOR UNKNOWN INDICATION
     Dosage: UNK
  4. ARIPIPRAZOLE. [Concomitant]
     Active Substance: ARIPIPRAZOLE
     Dosage: REDUCED TO 3.5MG/H
  5. ROTIGOTINE [Suspect]
     Active Substance: ROTIGOTINE
     Indication: PARKINSON^S DISEASE
     Dosage: 2MG PATCH
     Dates: start: 2007, end: 2007
  6. SINEMET [Concomitant]
     Active Substance: CARBIDOPA\LEVODOPA
     Indication: PRODUCT USED FOR UNKNOWN INDICATION
     Dosage: 125+62.5MG, 4X/DAY (QID)
  7. ARIPIPRAZOLE. [Concomitant]
     Active Substance: ARIPIPRAZOLE
     Indication: PRODUCT USED FOR UNKNOWN INDICATION
     Dosage: 5MG
  8. APOMORPHINE [Concomitant]
     Active Substance: APOMORPHINE
     Dosage: UNK
  9. APOMORPHINE [Concomitant]
     Active Substance: APOMORPHINE
     Dosage: 9.5MG/H
  10. SELEGILINE [Concomitant]
     Active Substance: SELEGILINE
     Indication: PRODUCT USED FOR UNKNOWN INDICATION
     Dosage: UNK
  11. LEVODOPA [Concomitant]
     Active Substance: LEVODOPA
     Dosage: 1600MG
  12. APOMORPHINE [Concomitant]
     Active Substance: APOMORPHINE
     Indication: PRODUCT USED FOR UNKNOWN INDICATION
     Dosage: UNK
     Dates: start: 2005
  13. ARIPIPRAZOLE. [Concomitant]
     Active Substance: ARIPIPRAZOLE
     Dosage: 20MG
  14. ROTIGOTINE [Suspect]
     Active Substance: ROTIGOTINE
     Dosage: 4MG
     Dates: start: 2007
  15. QUETIAPINE [Concomitant]
     Active Substance: QUETIAPINE
     Indication: PRODUCT USED FOR UNKNOWN INDICATION
     Dosage: 150MG

REACTIONS (6)
  - Parkinsonism [Unknown]
  - Anger [Unknown]
  - Emotional distress [Unknown]
  - Alcohol use [Unknown]
  - Suicidal ideation [Unknown]
  - Hostility [Unknown]

NARRATIVE: CASE EVENT DATE: 2007
